FAERS Safety Report 4738966-2 (Version None)
Quarter: 2005Q3

REPORT INFORMATION
  Report Type: 
  Country: None (occurrence: None)
  Receive Date: 20050801
  Receipt Date: 20050518
  Transmission Date: 20060218
  Serious: Yes (Life-Threatening, Other)
  Sender: FDA-Public Use
  Company Number: 214609

PATIENT
  Age: 60 Year
  Sex: Male

DRUGS (1)
  1. RITUXAN [Suspect]
     Indication: NON-HODGKIN'S LYMPHOMA

REACTIONS (6)
  - CHILLS [None]
  - COUGH [None]
  - HEADACHE [None]
  - MYALGIA [None]
  - PYREXIA [None]
  - TREMOR [None]
